FAERS Safety Report 10359721 (Version 3)
Quarter: 2014Q3

REPORT INFORMATION
  Report Type: Spontaneous
  Country: FR (occurrence: FR)
  Receive Date: 20140804
  Receipt Date: 20140829
  Transmission Date: 20150326
  Serious: Yes (Other)
  Sender: FDA-Public Use
  Company Number: FR-PFIZER INC-2014214463

PATIENT
  Age: 68 Year
  Sex: Male

DRUGS (8)
  1. CAMPTO [Suspect]
     Active Substance: IRINOTECAN
     Dosage: 320 MG, CYCLIC
     Route: 041
     Dates: start: 201402
  2. SOLU-MEDROL [Suspect]
     Active Substance: METHYLPREDNISOLONE SODIUM SUCCINATE
     Dosage: 40 MG, CYCLIC
     Route: 042
     Dates: start: 201402
  3. FLUOROURACILE PFIZER [Suspect]
     Active Substance: FLUOROURACIL
     Indication: GASTROINTESTINAL CARCINOMA
     Dosage: 720 MG, CYCLIC
     Route: 041
     Dates: start: 201303, end: 201311
  4. CAMPTO [Suspect]
     Active Substance: IRINOTECAN
     Indication: GASTROINTESTINAL CARCINOMA
     Dosage: 320 MG, CYCLIC
     Route: 041
     Dates: start: 201303, end: 201311
  5. AVASTIN [Suspect]
     Active Substance: BEVACIZUMAB
     Indication: GASTROINTESTINAL CARCINOMA
     Dosage: 325 MG, CYCLIC
     Route: 041
     Dates: start: 201303, end: 201311
  6. AVASTIN [Suspect]
     Active Substance: BEVACIZUMAB
     Dosage: 325 MG, CYCLIC
     Route: 041
     Dates: start: 201402
  7. SOLU-MEDROL [Suspect]
     Active Substance: METHYLPREDNISOLONE SODIUM SUCCINATE
     Indication: GASTROINTESTINAL CARCINOMA
     Dosage: 40 MG, CYCLIC
     Route: 042
     Dates: start: 201303, end: 201311
  8. FLUOROURACILE PFIZER [Suspect]
     Active Substance: FLUOROURACIL
     Dosage: 720 MG, CYCLIC
     Route: 041
     Dates: start: 201402

REACTIONS (1)
  - Cataract [Unknown]

NARRATIVE: CASE EVENT DATE: 2014
